FAERS Safety Report 4490527-9 (Version None)
Quarter: 2004Q4

REPORT INFORMATION
  Report Type: 
  Country: None (occurrence: None)
  Receive Date: 20041102
  Receipt Date: 20041021
  Transmission Date: 20050328
  Serious: Yes (Hospitalization)
  Sender: FDA-Public Use
  Company Number: US-SOLVAY-00304003851

PATIENT
  Age: 25 Year
  Sex: Male

DRUGS (1)
  1. CREON [Suspect]
     Indication: ILL-DEFINED DISORDER
     Dosage: DAILY DOSE: 1 DOSAGE FORM
     Route: 048
     Dates: start: 19930101, end: 19930101

REACTIONS (3)
  - FIBROSING COLONOPATHY [None]
  - PANCREATIC ATROPHY [None]
  - TREATMENT NONCOMPLIANCE [None]
